FAERS Safety Report 4452287-7 (Version None)
Quarter: 2004Q3

REPORT INFORMATION
  Report Type: 
  Country: None (occurrence: None)
  Receive Date: 20040917
  Receipt Date: 20040713
  Transmission Date: 20050211
  Serious: Yes (Life-Threatening, Hospitalization)
  Sender: FDA-Public Use
  Company Number: JP-ROCHE-375851

PATIENT
  Age: 24 Year
  Sex: Female
  Weight: 44 kg

DRUGS (2)
  1. TAMIFLU [Suspect]
     Route: 048
     Dates: start: 20040113, end: 20040115
  2. CRAVIT [Suspect]
     Indication: INFECTION
     Route: 048
     Dates: start: 20040113, end: 20040115

REACTIONS (4)
  - ANAEMIA [None]
  - HEPATIC FUNCTION ABNORMAL [None]
  - JAUNDICE [None]
  - THROMBOTIC THROMBOCYTOPENIC PURPURA [None]
